FAERS Safety Report 12073356 (Version 2)
Quarter: 2016Q3

REPORT INFORMATION
  Report Type: Spontaneous
  Country: IT (occurrence: IT)
  Receive Date: 20160212
  Receipt Date: 20160708
  Transmission Date: 20161109
  Serious: Yes (Death, Other)
  Sender: FDA-Public Use
  Company Number: IT-BAYER-2015-442741

PATIENT
  Sex: Male

DRUGS (1)
  1. KOGENATE [Suspect]
     Active Substance: ANTIHEMOPHILIC FACTOR, HUMAN RECOMBINANT

REACTIONS (2)
  - Anti factor VIII antibody positive [None]
  - Death [Fatal]
